FAERS Safety Report 8948737 (Version 1)
Quarter: 2012Q4

REPORT INFORMATION
  Report Type: 
  Country: US (occurrence: US)
  Receive Date: 20121206
  Receipt Date: 20121206
  Transmission Date: 20130627
  Serious: Yes (Hospitalization, Other)
  Sender: FDA-Public Use
  Company Number: US-TEVA-373693USA

PATIENT
  Age: 65 Year
  Sex: Female

DRUGS (8)
  1. FOLINIC ACID [Suspect]
     Indication: COLORECTAL CANCER METASTATIC
     Dosage: every cycle
     Route: 042
     Dates: start: 2012, end: 2012
  2. ZIV-AFLIBERCEPT [Suspect]
     Indication: COLORECTAL CANCER METASTATIC
     Dosage: every cycle
     Route: 041
     Dates: start: 2012, end: 2012
  3. FLUOROURACIL [Suspect]
     Indication: COLORECTAL CANCER METASTATIC
     Dosage: every cycle
     Route: 042
     Dates: start: 2012, end: 2012
  4. IRINOTECAN [Suspect]
     Indication: COLORECTAL CANCER METASTATIC
     Dosage: every cycle
     Route: 042
     Dates: start: 2012, end: 2012
  5. DIMETICONE, ACTIVATED [Concomitant]
  6. PARACETAMOL [Concomitant]
  7. ONDANSETRON [Concomitant]
  8. ANTINEOPLASTIC AGENTS [Concomitant]

REACTIONS (2)
  - Vaginal haemorrhage [Unknown]
  - Fall [Unknown]
